FAERS Safety Report 6080569-4 (Version None)
Quarter: 2009Q1

REPORT INFORMATION
  Report Type: 
  Country: None (occurrence: None)
  Receive Date: 20090217
  Receipt Date: 20090206
  Transmission Date: 20090719
  Serious: Yes (Hospitalization)
  Sender: FDA-Public Use
  Company Number: B0557799A

PATIENT
  Age: 72 Year
  Sex: Male

DRUGS (7)
  1. ARIXTRA [Suspect]
     Indication: VENOUS THROMBOSIS
     Dosage: 10MG PER DAY
     Route: 058
     Dates: start: 20081020, end: 20081106
  2. BIPROFENID [Suspect]
     Indication: SCIATICA
     Route: 048
     Dates: start: 20081026, end: 20081106
  3. CELECTOL [Concomitant]
     Indication: HYPERTENSION
     Dosage: 1UNIT PER DAY
     Route: 048
  4. COVERSYL [Concomitant]
     Indication: HYPERTENSION
     Dosage: 1UNIT PER DAY
     Route: 048
  5. FUROSEMIDE [Concomitant]
     Indication: HYPERTENSION
     Dosage: 40MG PER DAY
     Route: 048
  6. CIPROFIBRATE [Concomitant]
     Indication: HYPERLIPIDAEMIA
     Dosage: 100MG PER DAY
     Route: 048
  7. OMEPRAZOLE [Concomitant]
     Indication: DRUG USE FOR UNKNOWN INDICATION
     Route: 065

REACTIONS (11)
  - ABDOMINAL PAIN LOWER [None]
  - ANAEMIA [None]
  - BACK PAIN [None]
  - DRUG INTERACTION [None]
  - FALL [None]
  - INFLAMMATION [None]
  - MUSCLE HAEMORRHAGE [None]
  - OVERDOSE [None]
  - PLEURAL EFFUSION [None]
  - RENAL FAILURE ACUTE [None]
  - SCIATICA [None]
